FAERS Safety Report 5148999-2 (Version None)
Quarter: 2006Q4

REPORT INFORMATION
  Report Type: 
  Country: None (occurrence: None)
  Receive Date: 20061113
  Receipt Date: 20061106
  Transmission Date: 20070319
  Serious: Yes (Hospitalization)
  Sender: FDA-Public Use
  Company Number: 2006SE05964

PATIENT
  Age: 75 Year
  Sex: Male

DRUGS (9)
  1. BLOPRESS TABLETS 4 [Suspect]
     Indication: HYPERTENSION
     Route: 048
  2. GLOVENIN I [Suspect]
     Route: 042
     Dates: start: 20060912, end: 20060916
  3. GASTER D [Concomitant]
     Route: 048
  4. LUPRAC [Concomitant]
     Route: 048
  5. LIPOVAS [Concomitant]
     Route: 048
  6. LASIX [Concomitant]
     Route: 065
  7. PURSENNID [Concomitant]
     Route: 048
  8. LOXOPROFEN SODIUM [Concomitant]
     Route: 048
  9. DAIKENTYUTO [Concomitant]
     Route: 048

REACTIONS (2)
  - ABDOMINAL DISTENSION [None]
  - OEDEMA PERIPHERAL [None]
